FAERS Safety Report 5169007-3 (Version None)
Quarter: 2006Q4

REPORT INFORMATION
  Report Type: 
  Country: None (occurrence: None)
  Receive Date: 20061204
  Receipt Date: 20061123
  Transmission Date: 20070319
  Serious: Yes (Death, Life-Threatening, Other)
  Sender: FDA-Public Use
  Company Number: GXKR2006US07589

PATIENT
  Age: 23 Year
  Sex: Female

DRUGS (1)
  1. VERAPAMIL [Suspect]
     Dosage: 50 DF, ORAL
     Route: 048

REACTIONS (9)
  - ATRIOVENTRICULAR BLOCK [None]
  - BLOOD PRESSURE SYSTOLIC DECREASED [None]
  - BOWEL SOUNDS ABNORMAL [None]
  - CARDIAC ARREST [None]
  - HEART RATE DECREASED [None]
  - INTENTIONAL OVERDOSE [None]
  - PULMONARY OEDEMA [None]
  - RENAL FAILURE ACUTE [None]
  - SUICIDE ATTEMPT [None]
